FAERS Safety Report 4390144-5 (Version None)
Quarter: 2004Q2

REPORT INFORMATION
  Report Type: 
  Country: None (occurrence: None)
  Receive Date: 20040630
  Receipt Date: 20040614
  Transmission Date: 20050107
  Serious: Yes (Hospitalization)
  Sender: FDA-Public Use
  Company Number: DSA_24577_2004

PATIENT
  Age: 81 Year
  Sex: Male

DRUGS (7)
  1. DILTIAZEM [Suspect]
     Indication: ANGINA PECTORIS
     Dosage: 90 MG BID PO
     Route: 048
     Dates: end: 20040513
  2. DILTIAZEM [Suspect]
     Indication: PROPHYLAXIS
     Dosage: 90 MG BID PO
     Route: 048
     Dates: end: 20040513
  3. DOXAZOSIN [Suspect]
     Indication: HYPERTENSION
     Dosage: 8 MG QD PO
     Route: 048
     Dates: end: 20040513
  4. ASPIRIN [Concomitant]
  5. ATORVASTATIN CALCIUM [Concomitant]
  6. DURAGESIC [Concomitant]
  7. GTN [Concomitant]

REACTIONS (2)
  - CIRCULATORY COLLAPSE [None]
  - ORTHOSTATIC HYPOTENSION [None]
